FAERS Safety Report 17876602 (Version 4)
Quarter: 2020Q4

REPORT INFORMATION
  Report Type: Report from Study
  Country: US (occurrence: US)
  Receive Date: 20200609
  Receipt Date: 20201119
  Transmission Date: 20210113
  Serious: Yes (Death, Life-Threatening, Hospitalization, Other)
  Sender: FDA-Public Use
  Company Number: US-SA-2020SA127960

PATIENT

DRUGS (23)
  1. VANCOMYCIN [Concomitant]
     Active Substance: VANCOMYCIN
     Dosage: 1000 MG, 1X
     Route: 042
     Dates: start: 20200509, end: 20200515
  2. VANCOMYCIN [Concomitant]
     Active Substance: VANCOMYCIN
     Dosage: 500 MG, 1X
     Route: 042
     Dates: start: 20200511, end: 20200511
  3. CLONIDINE. [Concomitant]
     Active Substance: CLONIDINE
     Indication: HYPERTENSION
     Dosage: 0.1 MG, AS NECESSARY, PRN
     Route: 048
     Dates: start: 20200515, end: 20200616
  4. ACETAMINOPHEN. [Concomitant]
     Active Substance: ACETAMINOPHEN
     Indication: ANALGESIC THERAPY
     Dosage: 650 MG, AS NECESSARY, PRN
     Route: 048
     Dates: start: 20200508, end: 20200516
  5. SODIUM PHOSPHATE [Concomitant]
     Active Substance: SODIUM PHOSPHATE
     Indication: VITAMIN SUPPLEMENTATION
     Dosage: 15 MMOL, AS NECESSARY, PRN
     Route: 042
     Dates: start: 20200510, end: 20200513
  6. FENTANYL. [Concomitant]
     Active Substance: FENTANYL
     Dosage: 50-100 ?G, AS NECESSARY, PRN
     Route: 042
     Dates: start: 20200512, end: 20200616
  7. PLACEBO [Suspect]
     Active Substance: UNSPECIFIED INGREDIENT
     Dosage: PLACEBO, 1X
     Route: 042
     Dates: start: 20200510, end: 20200510
  8. PLACEBO [Suspect]
     Active Substance: UNSPECIFIED INGREDIENT
     Dosage: PLACEBO, 1X
     Route: 042
     Dates: start: 20200517, end: 20200517
  9. PLACEBO [Suspect]
     Active Substance: UNSPECIFIED INGREDIENT
     Indication: COVID-19
     Dosage: PLACEBO, 1X
     Route: 042
     Dates: start: 20200509, end: 20200509
  10. PANTOPRAZOLE [Concomitant]
     Active Substance: PANTOPRAZOLE
     Indication: GASTROOESOPHAGEAL REFLUX PROPHYLAXIS
  11. INSULIN [Concomitant]
     Active Substance: INSULIN NOS
     Indication: DIABETES MELLITUS
     Dosage: TITRATE PER SLIDING SCALE, UNIT
     Route: 058
     Dates: start: 20200508, end: 20200616
  12. POTASSIUM CHLORIDE. [Concomitant]
     Active Substance: POTASSIUM CHLORIDE
     Indication: VITAMIN SUPPLEMENTATION
     Dosage: 20 MEQ, AS NECESSARY, PRN
     Route: 042
     Dates: start: 20200510, end: 20200616
  13. AZITHROMYCIN ANHYDROUS. [Concomitant]
     Active Substance: AZITHROMYCIN ANHYDROUS
     Indication: ANTIBIOTIC THERAPY
     Dosage: 500 MG, QD
     Route: 042
     Dates: start: 20200508, end: 20200512
  14. PANTOPRAZOLE [Concomitant]
     Active Substance: PANTOPRAZOLE
     Dosage: 40 MG, QD
     Route: 042
     Dates: start: 20200508, end: 20200616
  15. PLACEBO [Suspect]
     Active Substance: UNSPECIFIED INGREDIENT
     Dosage: PLACEBO, 1X
     Route: 042
     Dates: start: 20200524, end: 20200524
  16. GUAIFENESIN LA [Concomitant]
     Indication: COVID-19
     Dosage: 600 MG, 1X
     Route: 048
     Dates: start: 20200510, end: 20200510
  17. CEFEPIME [Concomitant]
     Active Substance: CEFEPIME HYDROCHLORIDE
     Indication: COVID-19
     Dosage: 2 G, 1X
     Route: 042
     Dates: start: 20200509, end: 20200509
  18. CEFEPIME [Concomitant]
     Active Substance: CEFEPIME HYDROCHLORIDE
     Dosage: 1 G, BID
     Route: 042
     Dates: start: 20200509, end: 20200616
  19. METHYLPREDNISOLONE SODIUM SUCCINATE. [Concomitant]
     Active Substance: METHYLPREDNISOLONE SODIUM SUCCINATE
     Indication: COVID-19
     Dosage: 40 MG, TID
     Route: 042
     Dates: start: 20200510, end: 20200515
  20. FENTANYL. [Concomitant]
     Active Substance: FENTANYL
     Indication: ANALGESIC THERAPY
     Dosage: 1000 ?G, CONTINUOUS INFUSION - RATE OF 25MCG/HR
     Route: 042
     Dates: start: 20200512, end: 20200616
  21. VANCOMYCIN [Concomitant]
     Active Substance: VANCOMYCIN
     Indication: COVID-19
     Dosage: 750 MG, RUN AT 166.67 ML/HR
     Route: 042
     Dates: start: 20200509, end: 20200513
  22. ENOXAPARIN [Concomitant]
     Active Substance: ENOXAPARIN
     Indication: ANTICOAGULANT THERAPY
     Dosage: 40 MG, QD
     Route: 058
     Dates: start: 20200508, end: 20200616
  23. FUROSEMIDE. [Concomitant]
     Active Substance: FUROSEMIDE
     Indication: DIURETIC THERAPY
     Dosage: 20 MG, BID
     Route: 042
     Dates: start: 20200513, end: 20200516

REACTIONS (5)
  - Atrial fibrillation [Recovered/Resolved]
  - Thrombocytopenia [Recovered/Resolved]
  - Anaemia [Recovered/Resolved]
  - Acute respiratory failure [Fatal]
  - Lung infiltration [Recovered/Resolved]

NARRATIVE: CASE EVENT DATE: 20200510
